FAERS Safety Report 10371073 (Version 1)
Quarter: 2014Q3

REPORT INFORMATION
  Report Type: Spontaneous
  Country: BR (occurrence: BR)
  Receive Date: 20140808
  Receipt Date: 20140808
  Transmission Date: 20150326
  Serious: Yes (Life-Threatening, Hospitalization, Other)
  Sender: FDA-Public Use
  Company Number: BR-ELI_LILLY_AND_COMPANY-BR201408000495

PATIENT
  Age: 59 Year
  Sex: Female
  Weight: 52 kg

DRUGS (13)
  1. SELOZOK [Concomitant]
     Active Substance: METOPROLOL SUCCINATE
     Indication: CARDIAC DISORDER
  2. ATORVASTATIN CALCIUM. [Concomitant]
     Active Substance: ATORVASTATIN CALCIUM
     Indication: BLOOD TRIGLYCERIDES
     Dosage: 20 MG, UNKNOWN
     Route: 065
  3. ENALAPRIL [Concomitant]
     Active Substance: ENALAPRIL
     Indication: CARDIAC DISORDER
  4. HIDROCLOROTIAZIDE [Concomitant]
     Indication: BLOOD PRESSURE
     Dosage: 25 MG, UNKNOWN
     Route: 065
  5. HIDROCLOROTIAZIDE [Concomitant]
     Indication: CARDIAC DISORDER
  6. AMLODIPINE [Concomitant]
     Active Substance: AMLODIPINE BESYLATE
     Indication: BLOOD PRESSURE
     Dosage: 10 MG, UNKNOWN
     Route: 065
  7. HUMULIN N [Suspect]
     Active Substance: INSULIN HUMAN
     Dosage: 16 IU, EACH EVENING
     Route: 058
  8. SELOZOK [Concomitant]
     Active Substance: METOPROLOL SUCCINATE
     Indication: BLOOD PRESSURE
     Dosage: 100 MG, UNKNOWN
     Route: 065
  9. ENALAPRIL [Concomitant]
     Active Substance: ENALAPRIL
     Indication: BLOOD PRESSURE
     Dosage: 20 MG, UNKNOWN
     Route: 065
  10. ATORVASTATIN CALCIUM. [Concomitant]
     Active Substance: ATORVASTATIN CALCIUM
     Indication: BLOOD CHOLESTEROL
  11. AMLODIPINE [Concomitant]
     Active Substance: AMLODIPINE BESYLATE
     Indication: CARDIAC DISORDER
  12. CLOPIDOGREL                        /01220707/ [Concomitant]
     Indication: BLOOD DISORDER
     Dosage: UNK, UNKNOWN
     Route: 065
  13. HUMULIN N [Suspect]
     Active Substance: INSULIN HUMAN
     Indication: DIABETES MELLITUS
     Dosage: 34 IU, EACH MORNING
     Route: 058

REACTIONS (14)
  - Aneurysm [Recovered/Resolved]
  - Blood glucose increased [Recovered/Resolved]
  - Visual acuity reduced [Unknown]
  - Myocardial infarction [Recovered/Resolved]
  - Speech disorder [Recovered/Resolved]
  - Injection site pain [Unknown]
  - Ruptured cerebral aneurysm [Recovered/Resolved]
  - Dizziness [Recovered/Resolved]
  - Blood glucose decreased [Recovered/Resolved]
  - Crying [Unknown]
  - Arterial occlusive disease [Unknown]
  - Memory impairment [Not Recovered/Not Resolved]
  - Epistaxis [Recovered/Resolved]
  - Limb injury [Unknown]

NARRATIVE: CASE EVENT DATE: 1995
